FAERS Safety Report 25702565 (Version 1)
Quarter: 2025Q3

REPORT INFORMATION
  Report Type: Spontaneous
  Country: EU (occurrence: EU)
  Receive Date: 20250819
  Receipt Date: 20250819
  Transmission Date: 20251020
  Serious: Yes (Hospitalization, Other)
  Sender: PFIZER
  Company Number: EU-DEAQVIDAP-20250019

PATIENT
  Age: 80 Year
  Sex: Male
  Weight: 60 kg

DRUGS (8)
  1. DOCETAXEL [Suspect]
     Active Substance: DOCETAXEL
     Indication: Prostate cancer metastatic
     Dosage: 75 MG/M2, EVERY 3 WEEKS
     Route: 042
     Dates: start: 20240910, end: 20240910
  2. DOCETAXEL [Suspect]
     Active Substance: DOCETAXEL
     Dosage: 75 MG/M2, EVERY 3 WEEKS
     Route: 042
     Dates: start: 20250204, end: 20250204
  3. DOCETAXEL [Suspect]
     Active Substance: DOCETAXEL
     Route: 042
     Dates: start: 20250225
  4. PREDNISOLONE [Suspect]
     Active Substance: PREDNISOLONE
     Indication: Prostate cancer metastatic
     Dosage: 5 MG, 2X/DAY
     Route: 048
     Dates: start: 20240912
  5. PREDNISOLONE [Suspect]
     Active Substance: PREDNISOLONE
     Dosage: 5 MG, 2X/DAY
     Route: 048
     Dates: start: 20250215
  6. RAMIPRIL [Concomitant]
     Active Substance: RAMIPRIL
     Dates: start: 202403
  7. CALCIUM\VITAMIN D [Concomitant]
     Active Substance: CALCIUM\VITAMIN D
     Dates: start: 20240201
  8. DENOSUMAB [Concomitant]
     Active Substance: DENOSUMAB
     Dates: start: 202402

REACTIONS (3)
  - Pneumonia viral [Recovered/Resolved]
  - Haemoglobin decreased [Unknown]
  - Neutrophil count decreased [Unknown]

NARRATIVE: CASE EVENT DATE: 20250215
